FAERS Safety Report 7742531-2 (Version None)
Quarter: 2011Q3

REPORT INFORMATION
  Report Type: 
  Country: None (occurrence: None)
  Receive Date: 20110912
  Receipt Date: 20110906
  Transmission Date: 20111222
  Serious: Yes (Hospitalization)
  Sender: FDA-Public Use
  Company Number: US-ACTELION-A-US2011-51636

PATIENT

DRUGS (2)
  1. TRACLEER [Suspect]
     Indication: PULMONARY ARTERIAL HYPERTENSION
     Dosage: UNK MG, UNK
     Route: 048
     Dates: start: 20070105
  2. ADCIRCA [Concomitant]

REACTIONS (5)
  - BLOOD POTASSIUM INCREASED [None]
  - PAIN [None]
  - GOUT [None]
  - WEIGHT BEARING DIFFICULTY [None]
  - CONDITION AGGRAVATED [None]
